FAERS Safety Report 8024091-4 (Version None)
Quarter: 2011Q4

REPORT INFORMATION
  Report Type: 
  Country: None (occurrence: None)
  Receive Date: 20111130
  Receipt Date: 20101021
  Transmission Date: 20120403
  Serious: Yes (Hospitalization)
  Sender: FDA-Public Use
  Company Number: 316846

PATIENT
  Age: 49 Year
  Sex: Male

DRUGS (9)
  1. NORVASC [Concomitant]
  2. GLIPIZIDE [Concomitant]
  3. ASPIRIN [Concomitant]
  4. NOVOLOG [Suspect]
     Indication: TYPE 2 DIABETES MELLITUS
     Dates: start: 20100926
  5. NIACIN [Concomitant]
  6. ZOCOR [Concomitant]
  7. LISINOPRIL [Concomitant]
  8. NOVOLOG MIX 70/30 [Suspect]
     Indication: TYPE 2 DIABETES MELLITUS
     Dates: start: 20100926
  9. COREG [Concomitant]

REACTIONS (5)
  - BLOOD GLUCOSE INCREASED [None]
  - NAUSEA [None]
  - DIZZINESS [None]
  - EAR INFECTION [None]
  - VOMITING [None]
